FAERS Safety Report 13666320 (Version 1)
Quarter: 2017Q2

REPORT INFORMATION
  Report Type: Spontaneous
  Country: US (occurrence: US)
  Receive Date: 20170619
  Receipt Date: 20170619
  Transmission Date: 20170830
  Serious: Yes (Hospitalization)
  Sender: FDA-Public Use
  Company Number: US-ROCHE-691170

PATIENT
  Age: 62 Year
  Sex: Male
  Weight: 77.6 kg

DRUGS (9)
  1. METFORMIN [Concomitant]
     Active Substance: METFORMIN HYDROCHLORIDE
     Route: 048
     Dates: start: 20100209, end: 20100310
  2. OXALIPLATIN. [Suspect]
     Active Substance: OXALIPLATIN
     Indication: OESOPHAGEAL CANCER METASTATIC
     Route: 042
     Dates: start: 20091208, end: 20100302
  3. ZOMETA [Concomitant]
     Active Substance: ZOLEDRONIC ACID
     Route: 065
     Dates: start: 20100209, end: 20100302
  4. AVASTIN [Suspect]
     Active Substance: BEVACIZUMAB
     Indication: OESOPHAGEAL CANCER METASTATIC
     Route: 042
     Dates: start: 20091208, end: 20100302
  5. NYSTATIN. [Concomitant]
     Active Substance: NYSTATIN
     Dosage: FREQUENCY: 4 X DAILY FOR 14 DAYS. DRUG NAME: NYSTATIN MOUTH NASG.
     Route: 065
     Dates: start: 20091229, end: 20100111
  6. XELODA [Suspect]
     Active Substance: CAPECITABINE
     Indication: OESOPHAGEAL CANCER METASTATIC
     Dosage: FOR 14 DAYS.
     Route: 048
     Dates: start: 20091208, end: 20100306
  7. ONDANSETRON [Concomitant]
     Active Substance: ONDANSETRON
     Route: 065
     Dates: start: 20091208, end: 20100302
  8. DEXAMETHASONE. [Concomitant]
     Active Substance: DEXAMETHASONE
     Route: 065
     Dates: start: 20091208, end: 20100302
  9. HYDROCODONE [Concomitant]
     Active Substance: HYDROCODONE
     Route: 065

REACTIONS (1)
  - Syncope [Unknown]

NARRATIVE: CASE EVENT DATE: 20100307
